FAERS Safety Report 5739416-X (Version None)
Quarter: 2008Q2

REPORT INFORMATION
  Report Type: 
  Country: None (occurrence: None)
  Receive Date: 20080515
  Receipt Date: 20080514
  Transmission Date: 20081010
  Serious: Yes (Other)
  Sender: FDA-Public Use
  Company Number: DO-GILEAD-2005-0008415

PATIENT
  Sex: Female
  Weight: 52.21 kg

DRUGS (4)
  1. TENOFOVIR DISOPROXIL FUMARATE [Suspect]
     Indication: HIV INFECTION
     Route: 048
     Dates: start: 20031106, end: 20050330
  2. LAMIVUDINE [Concomitant]
     Indication: HIV INFECTION
     Route: 065
     Dates: start: 20031106, end: 20050330
  3. EFAVIRENZ [Concomitant]
     Indication: HIV INFECTION
     Route: 065
     Dates: start: 20031106, end: 20050330
  4. CITRACAL [Concomitant]
     Route: 065

REACTIONS (1)
  - ABORTION SPONTANEOUS [None]
